FAERS Safety Report 6933091-4 (Version None)
Quarter: 2010Q3

REPORT INFORMATION
  Report Type: 
  Country: None (occurrence: None)
  Receive Date: 20100817
  Receipt Date: 20100803
  Transmission Date: 20110219
  Serious: Yes (Hospitalization)
  Sender: FDA-Public Use
  Company Number: US-JNJFOC-20100801670

PATIENT
  Sex: Male

DRUGS (2)
  1. DECITABINE (DECITABINE) LYOPHILIZED POWDER [Suspect]
     Indication: PRODUCT USED FOR UNKNOWN INDICATION
     Dosage: 20 MG/M2, INTRAVENOUS
     Route: 042
  2. GEMTUZUMAB OZOGAMICIN (GEMTUZUMAB OZOGAMICIN) UNKNOWN [Suspect]
     Indication: PRODUCT USED FOR UNKNOWN INDICATION
     Dosage: 3 MG/M2

REACTIONS (2)
  - DIARRHOEA [None]
  - PANCREATITIS [None]
